FAERS Safety Report 24339493 (Version 2)
Quarter: 2024Q4

REPORT INFORMATION
  Report Type: Spontaneous
  Country: US (occurrence: US)
  Receive Date: 20240919
  Receipt Date: 20241009
  Transmission Date: 20250114
  Serious: No
  Sender: NOVARTIS
  Company Number: US-002147023-NVSC2024US187158

PATIENT
  Sex: Female

DRUGS (3)
  1. KISQALI FEMARA CO-PACK [Suspect]
     Active Substance: LETROZOLE\RIBOCICLIB
     Indication: Breast cancer
     Dosage: 600 MG, QD
     Route: 065
  2. KISQALI FEMARA CO-PACK [Suspect]
     Active Substance: LETROZOLE\RIBOCICLIB
     Indication: Breast cancer
     Dosage: 2.5 MG, QD
     Route: 065
  3. EXEMESTANE [Suspect]
     Active Substance: EXEMESTANE
     Indication: Breast cancer
     Dosage: UNK
     Route: 065

REACTIONS (2)
  - Rash [Unknown]
  - Hypersensitivity [Not Recovered/Not Resolved]
